FAERS Safety Report 9202186 (Version 1)
Quarter: 2013Q2

REPORT INFORMATION
  Report Type: Spontaneous
  Country: US (occurrence: US)
  Receive Date: 20130401
  Receipt Date: 20130401
  Transmission Date: 20140414
  Serious: Yes (Other)
  Sender: FDA-Public Use
  Company Number: US-GLAXOSMITHKLINE-A1018105A

PATIENT
  Sex: Female

DRUGS (1)
  1. COREG CR [Suspect]
     Dosage: 20MG UNKNOWN
     Route: 065
     Dates: start: 20120928

REACTIONS (1)
  - Myocardial infarction [Unknown]
